FAERS Safety Report 9854681 (Version 4)
Quarter: 2014Q4

REPORT INFORMATION
  Report Type: Spontaneous
  Country: US (occurrence: US)
  Receive Date: 20140130
  Receipt Date: 20141205
  Transmission Date: 20150529
  Serious: Yes (Hospitalization, Other)
  Sender: FDA-Public Use
  Company Number: US-BRISTOL-MYERS SQUIBB COMPANY-20057378

PATIENT
  Age: 72 Year
  Sex: Male

DRUGS (19)
  1. SIMVASTATIN. [Concomitant]
     Active Substance: SIMVASTATIN
  2. METFORMIN HCL [Concomitant]
     Active Substance: METFORMIN HYDROCHLORIDE
  3. SEROQUEL [Concomitant]
     Active Substance: QUETIAPINE FUMARATE
  4. METOPROLOL SUCCINATE. [Concomitant]
     Active Substance: METOPROLOL SUCCINATE
  5. EFFEXOR XR [Concomitant]
     Active Substance: VENLAFAXINE HYDROCHLORIDE
  6. LITHIUM CARBONATE. [Concomitant]
     Active Substance: LITHIUM CARBONATE
  7. LISINOPRIL. [Concomitant]
     Active Substance: LISINOPRIL
  8. CENTRUM SILVER [Concomitant]
     Active Substance: VITAMINS
  9. ABILIFY [Suspect]
     Active Substance: ARIPIPRAZOLE
     Route: 048
     Dates: start: 20090929, end: 20110107
  10. NIACIN. [Concomitant]
     Active Substance: NIACIN
     Dosage: 1000MG TABS/DAY;1.5MG/DAY
     Route: 048
  11. FLOMAX [Concomitant]
     Active Substance: TAMSULOSIN HYDROCHLORIDE
  12. NITROQUICK [Concomitant]
     Active Substance: NITROGLYCERIN
  13. GLYBURIDE. [Concomitant]
     Active Substance: GLYBURIDE
     Route: 048
  14. ZOLPIDEM [Concomitant]
     Active Substance: ZOLPIDEM\ZOLPIDEM TARTRATE
     Dosage: 5 MILLG
     Route: 048
  15. PLAVIX [Concomitant]
     Active Substance: CLOPIDOGREL BISULFATE
  16. BUSPIRONE HCL [Concomitant]
     Active Substance: BUSPIRONE HYDROCHLORIDE
  17. NEXIUM [Concomitant]
     Active Substance: ESOMEPRAZOLE MAGNESIUM
  18. METAMUCIL [Concomitant]
     Active Substance: PLANTAGO SEED
     Dosage: CAPS
  19. TYLENOL [Concomitant]
     Active Substance: ACETAMINOPHEN

REACTIONS (52)
  - Hypertensive heart disease [Unknown]
  - Skin cancer [Unknown]
  - Parkinsonism [Unknown]
  - Osteoporosis [Unknown]
  - Diabetes mellitus inadequate control [Unknown]
  - Peripheral vascular disorder [Unknown]
  - Arteriosclerosis coronary artery [Unknown]
  - Parkinson^s disease [Unknown]
  - Coronary artery disease [Unknown]
  - Nail disorder [Unknown]
  - Pain in extremity [Unknown]
  - Fall [Unknown]
  - Overweight [Unknown]
  - Coordination abnormal [Unknown]
  - Altered state of consciousness [Unknown]
  - Cardiac failure congestive [Unknown]
  - Drug dependence [Unknown]
  - Muscular weakness [Unknown]
  - Gastrooesophageal reflux disease [Unknown]
  - Rash [Unknown]
  - Affective disorder [Unknown]
  - Syncope [Unknown]
  - Acarodermatitis [Unknown]
  - Bipolar I disorder [Unknown]
  - Myocardial infarction [Unknown]
  - Generalised anxiety disorder [Unknown]
  - Hyperlipidaemia [Unknown]
  - Tremor [Unknown]
  - Carpal tunnel syndrome [Unknown]
  - Malaise [Unknown]
  - Arthropathy [Unknown]
  - Post concussion syndrome [Unknown]
  - Fatigue [Unknown]
  - Schizotypal personality disorder [Unknown]
  - Back pain [Unknown]
  - Hypercholesterolaemia [Unknown]
  - Insomnia [Unknown]
  - Lumbar vertebral fracture [Unknown]
  - Atrial fibrillation [Unknown]
  - Major depression [Unknown]
  - Circulatory collapse [Unknown]
  - Dyspnoea [Unknown]
  - Benign prostatic hyperplasia [Unknown]
  - Osteoarthritis [Unknown]
  - Headache [Unknown]
  - Lumbar vertebral fracture [Unknown]
  - Failure to thrive [Unknown]
  - Cellulitis [Unknown]
  - Gait disturbance [Unknown]
  - Dizziness [Unknown]
  - Constipation [Unknown]
  - Depression [Unknown]

NARRATIVE: CASE EVENT DATE: 20070824
